FAERS Safety Report 6761750-5 (Version None)
Quarter: 2010Q2

REPORT INFORMATION
  Report Type: 
  Country: None (occurrence: None)
  Receive Date: 20100419
  Receipt Date: 20100302
  Transmission Date: 20101027
  Serious: Yes (Other)
  Sender: FDA-Public Use
  Company Number: OMX-2010-00026

PATIENT
  Sex: 0

DRUGS (6)
  1. EVICEL [Suspect]
     Dates: start: 20091216
  2. PRESSURE REGULATOR DEVICE [Suspect]
     Dates: start: 20091216
  3. PLACEBO (PLACEBO) [Suspect]
     Dates: start: 20091216
  4. CEFAZOLIN [Concomitant]
  5. PERFALGAN (PARACETAMOL) [Concomitant]
  6. KETOPROFEN [Concomitant]

REACTIONS (2)
  - PROCEDURAL SITE REACTION [None]
  - SKIN NECROSIS [None]
